FAERS Safety Report 22690519 (Version 5)
Quarter: 2024Q4

REPORT INFORMATION
  Report Type: Spontaneous
  Country: FR (occurrence: FR)
  Receive Date: 20230711
  Receipt Date: 20241107
  Transmission Date: 20250115
  Serious: Yes (Hospitalization, Other)
  Sender: AUROBINDO
  Company Number: FR-AFSSAPS-PO2023000643

PATIENT
  Age: 59 Year
  Sex: Female

DRUGS (18)
  1. ONDANSETRON [Suspect]
     Active Substance: ONDANSETRON
     Indication: Antiemetic supportive care
     Dosage: UNK ( DOSAGE NOT GIVEN)
     Route: 042
     Dates: start: 20230523, end: 20230524
  2. PANTOPRAZOLE [Suspect]
     Active Substance: PANTOPRAZOLE
     Indication: Gastritis prophylaxis
     Dosage: UNK ( DOSAGE NOT GIVEN)
     Route: 042
     Dates: start: 20230522, end: 20230530
  3. PHLOROGLUCINOL [Suspect]
     Active Substance: PHLOROGLUCINOL
     Indication: Abdominal pain
     Dosage: UNK (DOSAGE NOT COMMUNICATED)
     Route: 042
     Dates: start: 20230523, end: 20230525
  4. SEVOFLURANE [Suspect]
     Active Substance: SEVOFLURANE
     Indication: Anaesthesia
     Dosage: UNK ( DOSAGE NOT GIVEN)
     Route: 042
     Dates: start: 20230522, end: 20230522
  5. ROPIVACAINE [Suspect]
     Active Substance: ROPIVACAINE
     Indication: Anaesthesia
     Dosage: UNK ( DOSAGE NOT GIVEN)
     Route: 042
     Dates: start: 20230522, end: 20230522
  6. ACUPAN [Suspect]
     Active Substance: NEFOPAM HYDROCHLORIDE
     Indication: Pain prophylaxis
     Dosage: UNK (DOSAGE NOT GIVEN)
     Route: 042
     Dates: start: 20230522, end: 20230523
  7. TRAMADOL HYDROCHLORIDE [Suspect]
     Active Substance: TRAMADOL HYDROCHLORIDE
     Indication: Pain prophylaxis
     Dosage: UNK (DOSE WAS NOT REPORTED)
     Route: 042
     Dates: start: 20230522, end: 20230522
  8. PERFALGAN [Suspect]
     Active Substance: ACETAMINOPHEN
     Indication: Antibiotic prophylaxis
     Dosage: UNK ( DOSAGE NOT GIVEN)
     Route: 042
     Dates: start: 20230522, end: 20230525
  9. DEXAMETHASONE [Suspect]
     Active Substance: DEXAMETHASONE
     Indication: Prophylaxis of nausea and vomiting
     Dosage: UNK (DOSAGE NOT GIVEN)
     Route: 042
     Dates: start: 20230522, end: 20230522
  10. PHLOROGLUCINOL\1,3,5-TRIMETHOXYBENZENE [Suspect]
     Active Substance: PHLOROGLUCINOL\1,3,5-TRIMETHOXYBENZENE
     Indication: Abdominal pain
     Dosage: UNK (DOSAGE NOT GIVEN)
     Route: 042
     Dates: start: 20230523, end: 20230525
  11. NICARDIPINE HYDROCHLORIDE [Suspect]
     Active Substance: NICARDIPINE HYDROCHLORIDE
     Indication: Hypertension
     Dosage: UNK ( DOSAGE NOT GIVEN)
     Route: 042
     Dates: start: 20230523, end: 20230524
  12. PROPOFOL [Suspect]
     Active Substance: PROPOFOL
     Indication: Anaesthesia
     Dosage: UNK (DOSAGE NOT GIVEN)
     Route: 042
     Dates: start: 20230522, end: 20230522
  13. SUFENTANIL [Suspect]
     Active Substance: SUFENTANIL
     Indication: Anaesthesia
     Dosage: UNK (DOSAGE NOT GIVEN)
     Route: 042
     Dates: start: 20230522, end: 20230522
  14. KETAMINE [Suspect]
     Active Substance: KETAMINE
     Indication: Anaesthesia
     Dosage: UNK (DOSAGE NOT GIVEN)
     Route: 042
     Dates: start: 20230522, end: 20230522
  15. ATRACURIUM [Suspect]
     Active Substance: ATRACURIUM
     Indication: Anaesthesia
     Dosage: UNK (DOSAGE NOT GIVEN)
     Route: 042
     Dates: start: 20230522, end: 20230522
  16. LOVENOX [Suspect]
     Active Substance: ENOXAPARIN SODIUM
     Indication: Thrombosis prophylaxis
     Dosage: UNK (DOSAGE NOT GIVEN)
     Route: 058
     Dates: start: 20230522, end: 20230601
  17. CEFAZOLIN SODIUM [Suspect]
     Active Substance: CEFAZOLIN SODIUM
     Indication: Antibiotic prophylaxis
     Dosage: UNK (DOSAGE NOT GIVEN)
     Route: 042
     Dates: start: 20230522, end: 20230522
  18. ULTRAVIST [Suspect]
     Active Substance: IOPROMIDE
     Indication: Imaging procedure
     Dosage: UNK (DOSAGE NOT GIVEN)
     Route: 042
     Dates: start: 20230524, end: 20230524

REACTIONS (1)
  - Acute generalised exanthematous pustulosis [Recovered/Resolved]

NARRATIVE: CASE EVENT DATE: 20230525
